FAERS Safety Report 8424305-2 (Version None)
Quarter: 2012Q2

REPORT INFORMATION
  Report Type: 
  Country: None (occurrence: None)
  Receive Date: 20120608
  Receipt Date: 20111020
  Transmission Date: 20120825
  Serious: No
  Sender: FDA-Public Use
  Company Number: US-ASTRAZENECA-2011SE63360

PATIENT
  Age: 59 Year
  Sex: Male

DRUGS (5)
  1. FORADIL [Suspect]
     Indication: CHRONIC OBSTRUCTIVE PULMONARY DISEASE
     Route: 055
     Dates: start: 20050101
  2. SPIRIVA [Concomitant]
  3. PULMICORT [Suspect]
     Route: 055
     Dates: end: 20111011
  4. FORADIL [Suspect]
     Indication: ASTHMA
     Route: 055
     Dates: start: 20050101
  5. ASMANEX TWISTHALER [Suspect]
     Dates: end: 20111011

REACTIONS (1)
  - BRONCHOPULMONARY ASPERGILLOSIS [None]
